FAERS Safety Report 7109834-6 (Version None)
Quarter: 2010Q4

REPORT INFORMATION
  Report Type: 
  Country: None (occurrence: None)
  Receive Date: 20101118
  Receipt Date: 20101112
  Transmission Date: 20110411
  Serious: Yes (Death)
  Sender: FDA-Public Use
  Company Number: PHHY2010BR61099

PATIENT
  Sex: Female

DRUGS (4)
  1. LEPONEX [Suspect]
     Dosage: 25 MG, UNK
  2. EXELON [Suspect]
     Dosage: UNK
     Route: 062
  3. HYGROTON [Suspect]
  4. CARVEDILOL [Concomitant]
     Dosage: UNK

REACTIONS (2)
  - DEATH [None]
  - WRONG TECHNIQUE IN DRUG USAGE PROCESS [None]
